FAERS Safety Report 4331382-7 (Version None)
Quarter: 2004Q1

REPORT INFORMATION
  Report Type: 
  Country: None (occurrence: None)
  Receive Date: 20040329
  Receipt Date: 20040316
  Transmission Date: 20041129
  Serious: Yes (Hospitalization)
  Sender: FDA-Public Use
  Company Number: 2004-03-1003

PATIENT
  Age: 59 Year
  Sex: Male

DRUGS (4)
  1. REBETOL [Suspect]
     Indication: HEPATITIS C
     Dosage: SEE IMAGE ORAL
     Route: 048
     Dates: start: 20030515, end: 20030829
  2. REBETOL [Suspect]
     Indication: HEPATITIS C
     Dosage: SEE IMAGE ORAL
     Route: 048
     Dates: start: 20030515
  3. REBETOL [Suspect]
     Indication: HEPATITIS C
     Dosage: SEE IMAGE ORAL
     Route: 048
     Dates: start: 20030829
  4. PEGASYS [Suspect]
     Indication: HEPATITIS C
     Dosage: 180 UG QW SUBCUTANEOUS
     Route: 058
     Dates: start: 20030515

REACTIONS (3)
  - PAIN [None]
  - POST PROCEDURAL COMPLICATION [None]
  - THROMBOPHLEBITIS SUPERFICIAL [None]
